FAERS Safety Report 26109159 (Version 1)
Quarter: 2025Q4

REPORT INFORMATION
  Report Type: Spontaneous
  Country: US (occurrence: US)
  Receive Date: 20251201
  Receipt Date: 20251201
  Transmission Date: 20260118
  Serious: No
  Sender: PFIZER
  Company Number: US-PFIZER INC-202500232309

PATIENT
  Age: 49 Year
  Sex: Female
  Weight: 60.33 kg

DRUGS (1)
  1. NURTEC ODT [Suspect]
     Active Substance: RIMEGEPANT SULFATE
     Indication: Migraine
     Dosage: AS NEEDED, ABOUT FOUR TIMES A WEEK.
     Route: 048
     Dates: start: 2023, end: 202509

REACTIONS (1)
  - Raynaud^s phenomenon [Not Recovered/Not Resolved]
